FAERS Safety Report 18530388 (Version 1)
Quarter: 2020Q4

REPORT INFORMATION
  Report Type: Report from Study
  Country: None (occurrence: CA)
  Receive Date: 20201121
  Receipt Date: 20201121
  Transmission Date: 20210114
  Serious: Yes (Other)
  Sender: FDA-Public Use
  Company Number: CA-ABBVIE-20K-028-3656320-00

PATIENT
  Sex: Male

DRUGS (6)
  1. XTANDI [Concomitant]
     Active Substance: ENZALUTAMIDE
     Indication: PRODUCT USED FOR UNKNOWN INDICATION
  2. JAMP-VITAMINE D3 [Concomitant]
     Indication: PRODUCT USED FOR UNKNOWN INDICATION
     Dosage: B12 L.A 1200MCG.
  3. LUPRON DEPOT [Suspect]
     Active Substance: LEUPROLIDE ACETATE
     Indication: PROSTATE CANCER
     Route: 030
  4. RIVA CAL D1000 [Concomitant]
     Indication: PRODUCT USED FOR UNKNOWN INDICATION
     Dosage: 500MG - 1000UI
  5. APO-HYDRO [Concomitant]
     Active Substance: HYDROCHLOROTHIAZIDE
     Indication: PRODUCT USED FOR UNKNOWN INDICATION
  6. XGEVA [Concomitant]
     Active Substance: DENOSUMAB
     Indication: PRODUCT USED FOR UNKNOWN INDICATION
     Dosage: 120MG/1.7ML SOL.INJ S.C

REACTIONS (2)
  - Metastases to bone [Not Recovered/Not Resolved]
  - Back pain [Not Recovered/Not Resolved]
